FAERS Safety Report 15005632 (Version 1)
Quarter: 2018Q2

REPORT INFORMATION
  Report Type: Spontaneous
  Country: US (occurrence: US)
  Receive Date: 20180613
  Receipt Date: 20180613
  Transmission Date: 20180711
  Serious: No
  Sender: FDA-Public Use
  Company Number: US-MIST-STN-2017-0680

PATIENT
  Age: 75 Year
  Sex: Male
  Weight: 93.52 kg

DRUGS (3)
  1. STENDRA [Suspect]
     Active Substance: AVANAFIL
     Indication: ERECTILE DYSFUNCTION
     Dosage: ONE TABLET AS NEEDED
     Route: 048
     Dates: start: 201701
  2. STENDRA [Suspect]
     Active Substance: AVANAFIL
     Dosage: ONE TABLET AS NEEDED
     Route: 048
  3. LOSARTAN. [Concomitant]
     Active Substance: LOSARTAN
     Indication: HYPERTENSION

REACTIONS (1)
  - Drug effect decreased [Unknown]

NARRATIVE: CASE EVENT DATE: 201701
